FAERS Safety Report 20736977 (Version 2)
Quarter: 2022Q2

REPORT INFORMATION
  Report Type: Report from Study
  Country: CA (occurrence: None)
  Receive Date: 20220421
  Receipt Date: 20220606
  Transmission Date: 20220721
  Serious: Yes (Hospitalization)
  Sender: FDA-Public Use
  Company Number: CA-ROCHE-3072833

PATIENT
  Age: 53 Year
  Sex: Male

DRUGS (6)
  1. VENETOCLAX [Suspect]
     Active Substance: VENETOCLAX
     Indication: Haematological malignancy
     Dosage: (DAYS 1-10 CYCLE 2 AND 3)?LAST DOSE PRIOR TO THE SAE: 03/APR/2022
     Route: 048
     Dates: start: 20220214, end: 20220403
  2. RITUXIMAB [Suspect]
     Active Substance: RITUXIMAB
     Indication: Haematological malignancy
     Dosage: DAY 1?LAST DOSE PRIOR TO THE SAE ON 31/MAR/2022 (C3D1) FOR R-GDP
     Route: 041
     Dates: start: 20220210, end: 20220331
  3. GEMCITABINE [Suspect]
     Active Substance: GEMCITABINE
     Indication: Haematological malignancy
     Dosage: (DAY 1,DAY 8)? LAST DOSE PRIOR TO THE SAE ON 31/MAR/2022 (C3D1) FOR R-GDP
     Route: 042
     Dates: start: 20220211, end: 20220331
  4. CISPLATIN [Suspect]
     Active Substance: CISPLATIN
     Indication: Haematological malignancy
     Dosage: DAY 1? LAST DOSE PRIOR TO THE SAE ON 31/MAR/2022 (C3D1) FOR R-GDP
     Route: 042
     Dates: start: 20220211, end: 20220331
  5. DEXAMETHASONE [Suspect]
     Active Substance: DEXAMETHASONE
     Indication: Haematological malignancy
     Dosage: (DAYS 1-4)? LAST DOSE PRIOR TO THE SAE ON 31/MAR/2022 (C3D1) FOR R-GDP
     Route: 048
     Dates: start: 20220211, end: 20220403
  6. FILGRASTIM [Concomitant]
     Active Substance: FILGRASTIM
     Dates: start: 20220405

REACTIONS (2)
  - Pneumonia aspiration [Unknown]
  - Sepsis [Unknown]

NARRATIVE: CASE EVENT DATE: 20220405
